FAERS Safety Report 9062477 (Version 1)
Quarter: 2013Q1

REPORT INFORMATION
  Report Type: Spontaneous
  Country: DK (occurrence: DK)
  Receive Date: 20130213
  Receipt Date: 20130213
  Transmission Date: 20140127
  Serious: Yes (Hospitalization)
  Sender: FDA-Public Use
  Company Number: DK-ACCORD-016280

PATIENT
  Age: 60 Year
  Sex: Female

DRUGS (2)
  1. QUETIAPINE FUMARATE [Suspect]
     Indication: DEPRESSION
     Route: 048
  2. LAMOTRIGINE [Suspect]
     Indication: DEPRESSION
     Dates: start: 20121106, end: 20121120

REACTIONS (2)
  - Thrombosis [Unknown]
  - Off label use [Unknown]
